FAERS Safety Report 4981892-4 (Version None)
Quarter: 2006Q2

REPORT INFORMATION
  Report Type: 
  Country: None (occurrence: None)
  Receive Date: 20060424
  Receipt Date: 20060424
  Transmission Date: 20061013
  Serious: Yes (Other)
  Sender: FDA-Public Use
  Company Number: None

PATIENT
  Sex: Female
  Weight: 64.8644 kg

DRUGS (12)
  1. VELCADE [Suspect]
     Indication: MULTIPLE MYELOMA
     Dosage: 1.3 MG/M2    2X/WEEK FOR 2 WEEKS   IV
     Route: 042
     Dates: start: 20060403
  2. BETAMETHASONE [Suspect]
     Indication: MULTIPLE MYELOMA
     Dosage: 40 MG    4X/WEEK FOR 3 WEEKS    P.O.
     Route: 048
     Dates: start: 20060403
  3. DIFLUCAN [Concomitant]
  4. ZOMETA [Concomitant]
  5. FOLTX [Concomitant]
  6. PRILOSEC [Concomitant]
  7. ARANESP [Concomitant]
  8. IRON (FERROUS GLUCONATE) [Concomitant]
  9. BACTRIM [Concomitant]
  10. PERCOCET [Concomitant]
  11. ASPIRIN [Concomitant]
  12. MYCELEX [Concomitant]

REACTIONS (2)
  - BLOOD HUMAN CHORIONIC GONADOTROPIN POSITIVE [None]
  - OLIGOMENORRHOEA [None]
